FAERS Safety Report 7985287-0 (Version None)
Quarter: 2011Q4

REPORT INFORMATION
  Report Type: 
  Country: None (occurrence: None)
  Receive Date: 20111216
  Receipt Date: 20111201
  Transmission Date: 20120403
  Serious: Yes (Other)
  Sender: FDA-Public Use
  Company Number: PL-ROCHE-1009776

PATIENT
  Sex: Male

DRUGS (1)
  1. LUCENTIS [Suspect]
     Indication: AGE-RELATED MACULAR DEGENERATION
     Route: 050
     Dates: start: 20080101

REACTIONS (4)
  - CHOROIDAL NEOVASCULARISATION [None]
  - RETINAL HAEMORRHAGE [None]
  - RETINAL PIGMENT EPITHELIAL TEAR [None]
  - DETACHMENT OF RETINAL PIGMENT EPITHELIUM [None]
